FAERS Safety Report 10227299 (Version 1)
Quarter: 2014Q2

REPORT INFORMATION
  Report Type: Spontaneous
  Country: ZA (occurrence: ZA)
  Receive Date: 20140610
  Receipt Date: 20140610
  Transmission Date: 20141212
  Serious: Yes (Hospitalization)
  Sender: FDA-Public Use
  Company Number: ZA-ELI_LILLY_AND_COMPANY-ZA201406000878

PATIENT
  Sex: Male

DRUGS (4)
  1. HUMALOG 50% LISPRO, 50% NPL [Suspect]
     Indication: PRODUCT USED FOR UNKNOWN INDICATION
     Dosage: 50 U, QD
     Route: 065
  2. CRESTOR [Concomitant]
     Dosage: 5 MG, QD
  3. CLEXANE [Concomitant]
     Dosage: 40 MG, QD
  4. GLUCOPHAGE [Concomitant]
     Dosage: 1 MG, BID

REACTIONS (7)
  - Bronchitis [Unknown]
  - Hypertension [Unknown]
  - Blood glucose increased [Unknown]
  - Nausea [Unknown]
  - Dyspnoea [Unknown]
  - Injection site bruising [Unknown]
  - Hypoglycaemia [Unknown]
